FAERS Safety Report 6030958-9 (Version None)
Quarter: 2009Q1

REPORT INFORMATION
  Report Type: 
  Country: None (occurrence: None)
  Receive Date: 20090106
  Receipt Date: 20081223
  Transmission Date: 20090719
  Serious: Yes (Death)
  Sender: FDA-Public Use
  Company Number: MPS1-1000156

PATIENT
  Age: 7 Year
  Sex: Female

DRUGS (1)
  1. ALDURAZYME [Suspect]
     Indication: MUCOPOLYSACCHARIDOSIS I
     Dosage: INTRAVENOUS
     Route: 042
     Dates: end: 20081211

REACTIONS (2)
  - PNEUMONIA BACTERIAL [None]
  - RESPIRATORY TRACT INFECTION VIRAL [None]
